FAERS Safety Report 5213101-5 (Version None)
Quarter: 2007Q1

REPORT INFORMATION
  Report Type: 
  Country: None (occurrence: None)
  Receive Date: 20070118
  Receipt Date: 20070118
  Transmission Date: 20070707
  Serious: Yes (Other)
  Sender: FDA-Public Use
  Company Number: None

PATIENT
  Age: 52 Year
  Sex: Female
  Weight: 68.9467 kg

DRUGS (2)
  1. ONDANSETRON [Suspect]
     Indication: NAUSEA
  2. ONDANSETRON [Suspect]
     Indication: OVARIAN CANCER

REACTIONS (2)
  - NAUSEA [None]
  - VOMITING [None]
